FAERS Safety Report 7670949-5 (Version None)
Quarter: 2011Q3

REPORT INFORMATION
  Report Type: 
  Country: None (occurrence: None)
  Receive Date: 20110809
  Receipt Date: 20110804
  Transmission Date: 20111222
  Serious: Yes (Life-Threatening, Hospitalization)
  Sender: FDA-Public Use
  Company Number: US-PFIZER INC-9917099

PATIENT
  Sex: Female
  Weight: 48 kg

DRUGS (5)
  1. ZOLOFT [Suspect]
     Dosage: 700 MG (13-14 X 50 MG)
     Route: 048
     Dates: start: 19990415, end: 19990415
  2. METABOLIFE [Suspect]
     Dosage: UNK
     Dates: start: 19990415, end: 19990415
  3. PROZAC [Suspect]
     Dosage: 320 MG (15-16 X 20 MG)
     Route: 048
     Dates: start: 19990415, end: 19990415
  4. TESSALON [Suspect]
     Dosage: 400 MG (4 X 100 MG)
     Route: 048
     Dates: start: 19990415, end: 19990415
  5. PHENTERMINE [Suspect]
     Dosage: UNK
     Route: 048
     Dates: start: 19990415, end: 19990415

REACTIONS (4)
  - SUICIDE ATTEMPT [None]
  - ATRIOVENTRICULAR BLOCK COMPLETE [None]
  - HYPERHIDROSIS [None]
  - INTENTIONAL OVERDOSE [None]
